FAERS Safety Report 6234643-X (Version None)
Quarter: 2009Q2

REPORT INFORMATION
  Report Type: 
  Country: None (occurrence: None)
  Receive Date: 20090615
  Receipt Date: 20090410
  Transmission Date: 20091009
  Serious: No
  Sender: FDA-Public Use
  Company Number: DSA_33506_2009

PATIENT
  Sex: Female

DRUGS (1)
  1. XENAZINE [Suspect]
     Indication: TIC
     Dosage: 25 MG BID
     Dates: start: 20090101, end: 20090312

REACTIONS (2)
  - FATIGUE [None]
  - PAIN IN EXTREMITY [None]
